FAERS Safety Report 9710061 (Version 2)
Quarter: 2013Q4

REPORT INFORMATION
  Report Type: Spontaneous
  Country: US (occurrence: US)
  Receive Date: 20131126
  Receipt Date: 20131127
  Transmission Date: 20140711
  Serious: Yes (Life-Threatening)
  Sender: FDA-Public Use
  Company Number: US-JNJFOC-20131114877

PATIENT
  Age: 77 Year
  Sex: Female
  Weight: 82 kg

DRUGS (4)
  1. XARELTO [Suspect]
     Indication: PRODUCT USED FOR UNKNOWN INDICATION
     Route: 048
  2. XARELTO [Suspect]
     Indication: PRODUCT USED FOR UNKNOWN INDICATION
     Route: 048
  3. ASPIRIN [Concomitant]
     Route: 048
  4. ENOXAPARIN [Concomitant]
     Dosage: 20-JUN TO 26-JUN
     Route: 058

REACTIONS (3)
  - Mitral valve repair [Unknown]
  - Coronary artery bypass [Unknown]
  - Incorrect dose administered [Unknown]
